FAERS Safety Report 8035598-8 (Version None)
Quarter: 2012Q1

REPORT INFORMATION
  Report Type: 
  Country: None (occurrence: None)
  Receive Date: 20120111
  Receipt Date: 20111230
  Transmission Date: 20120608
  Serious: Yes (Other)
  Sender: FDA-Public Use
  Company Number: US-ELI_LILLY_AND_COMPANY-US201201001440

PATIENT
  Sex: Female

DRUGS (3)
  1. MILNACIPRAN [Concomitant]
  2. HYDROXYCHLOROQUINE SULFATE [Concomitant]
  3. FORTEO [Suspect]
     Indication: OSTEOPOROSIS
     Dosage: 20 UG, UNK
     Route: 065
     Dates: start: 20101201, end: 20111202

REACTIONS (8)
  - ACTIVITIES OF DAILY LIVING IMPAIRED [None]
  - VOMITING [None]
  - HEADACHE [None]
  - VISION BLURRED [None]
  - INTRACRANIAL ANEURYSM [None]
  - NAUSEA [None]
  - BLOOD PRESSURE INCREASED [None]
  - DIZZINESS [None]
